FAERS Safety Report 21719789 (Version 1)
Quarter: 2022Q4

REPORT INFORMATION
  Report Type: Spontaneous
  Country: US (occurrence: US)
  Receive Date: 20221213
  Receipt Date: 20221213
  Transmission Date: 20230112
  Serious: No
  Sender: FDA-Public Use
  Company Number: US-BoehringerIngelheim-2022-BI-207421

PATIENT
  Sex: Male

DRUGS (1)
  1. JARDIANCE [Suspect]
     Active Substance: EMPAGLIFLOZIN
     Indication: Type 2 diabetes mellitus
     Dosage: TOOK 1/4 A TABLET FOR A WHILE BEFORE MOVING UP TO 1/2 A TABLET
     Route: 048
     Dates: start: 202204, end: 202211

REACTIONS (7)
  - Confusional state [Not Recovered/Not Resolved]
  - Muscle atrophy [Unknown]
  - Gait disturbance [Unknown]
  - Asthenia [Unknown]
  - Apathy [Unknown]
  - Fatigue [Unknown]
  - Wrong technique in product usage process [Unknown]
